FAERS Safety Report 7204689 (Version 11)
Quarter: 2012Q4

REPORT INFORMATION
  Report Type: 
  Country: US (occurrence: US)
  Receive Date: 20091208
  Receipt Date: 20121026
  Transmission Date: 20130627
  Serious: Yes (Hospitalization, Other)
  Sender: FDA-Public Use
  Company Number: PHEH2009US16949

PATIENT
  Sex: Female

DRUGS (19)
  1. AREDIA [Suspect]
     Indication: OSTEOPOROSIS
     Route: 042
     Dates: start: 2003, end: 20060607
  2. AREDIA [Suspect]
     Indication: BREAST CANCER
  3. PREMARIN [Concomitant]
  4. DYAZIDE [Concomitant]
  5. PRILOSEC [Concomitant]
  6. ULTRAM [Concomitant]
  7. FEMARA [Concomitant]
  8. CALCIUM [Concomitant]
  9. ZOFRAN [Concomitant]
  10. DEMEROL [Concomitant]
  11. LORTAB [Concomitant]
  12. ARIMIDEX [Concomitant]
  13. TYLENOL [Concomitant]
  14. PHENERGAN [Concomitant]
  15. DILAUDID [Concomitant]
  16. VANCOMYCIN [Concomitant]
  17. NEURONTIN [Concomitant]
     Dosage: 300 mg, BID
     Route: 048
  18. LEXAPRO [Concomitant]
  19. AMBIEN [Concomitant]

REACTIONS (58)
  - Lipoma [Unknown]
  - Osteoporosis [Unknown]
  - Osteopenia [Unknown]
  - Osteonecrosis of jaw [Unknown]
  - Osteomyelitis [Unknown]
  - Pain [Unknown]
  - Decreased interest [Unknown]
  - Anxiety [Unknown]
  - Impaired healing [Unknown]
  - Exposed bone in jaw [Unknown]
  - Paraesthesia [Unknown]
  - Swelling [Unknown]
  - Primary sequestrum [Unknown]
  - Periodontitis [Unknown]
  - Tooth loss [Unknown]
  - Injury [Unknown]
  - Stress fracture [Unknown]
  - Bronchitis [Unknown]
  - Hypertension [Unknown]
  - Meningitis [Unknown]
  - Mass [Unknown]
  - Pulmonary embolism [Unknown]
  - Chronic obstructive pulmonary disease [Unknown]
  - Rheumatoid arthritis [Unknown]
  - Diverticulitis [Unknown]
  - Leukocytosis [Unknown]
  - Abdominal pain [Unknown]
  - Haemorrhoids [Unknown]
  - Rectal haemorrhage [Unknown]
  - Emphysema [Unknown]
  - Pulmonary granuloma [Unknown]
  - Pleural fibrosis [Unknown]
  - Meningitis viral [Unknown]
  - Mitral valve incompetence [Unknown]
  - Tricuspid valve incompetence [Unknown]
  - Seborrhoeic keratosis [Unknown]
  - Depression [Unknown]
  - Pleural effusion [Unknown]
  - Tenosynovitis [Unknown]
  - Foot fracture [Unknown]
  - Renal failure [Unknown]
  - Cardiac murmur functional [Unknown]
  - Mitral valve calcification [Unknown]
  - Aortic valve incompetence [Unknown]
  - Azotaemia [Unknown]
  - Fibromyalgia [Unknown]
  - Chest pain [Unknown]
  - Hypertonic bladder [Unknown]
  - Arthralgia [Unknown]
  - Insomnia [Recovered/Resolved]
  - Oedema peripheral [Unknown]
  - Hypokalaemia [Recovered/Resolved]
  - Back pain [Unknown]
  - Hypermetropia [Unknown]
  - Astigmatism [Unknown]
  - Presbyopia [Unknown]
  - Bone disorder [Unknown]
  - Chondropathy [Unknown]
